FAERS Safety Report 17032854 (Version 1)
Quarter: 2019Q4

REPORT INFORMATION
  Report Type: Spontaneous
  Country: US (occurrence: US)
  Receive Date: 20191114
  Receipt Date: 20191114
  Transmission Date: 20200122
  Serious: No
  Sender: FDA-Public Use
  Company Number: US-PFIZER INC-2019493759

PATIENT

DRUGS (3)
  1. DILTIAZEM HCL [Suspect]
     Active Substance: DILTIAZEM HYDROCHLORIDE
     Dosage: 120 MILLIGRAM, QD
     Route: 065
  2. FLECAINIDE [FLECAINIDE ACETATE] [Suspect]
     Active Substance: FLECAINIDE ACETATE
     Dosage: 50 MILLIGRAM, BID
     Route: 065
  3. ELIQUIS [Suspect]
     Active Substance: APIXABAN
     Dosage: 5 MILLIGRAM, BID
     Route: 065

REACTIONS (2)
  - Nausea [Unknown]
  - Fatigue [Unknown]
